FAERS Safety Report 9779179 (Version 3)
Quarter: 2014Q1

REPORT INFORMATION
  Report Type: Spontaneous
  Country: US (occurrence: US)
  Receive Date: 20131223
  Receipt Date: 20140318
  Transmission Date: 20141002
  Serious: No
  Sender: FDA-Public Use
  Company Number: US-PFIZER INC-2013366340

PATIENT
  Age: 54 Year
  Sex: Female

DRUGS (5)
  1. LYRICA [Suspect]
     Dosage: 300 MG, 2X/DAY
     Route: 048
  2. ACTOS [Concomitant]
     Dosage: 30 MG, 1X/DAY
     Route: 048
  3. ARMOUR THYROID [Concomitant]
     Dosage: 120 MG, 1X/DAY (TAKE 120 MG BY MOUTH ONCE DAILY)
     Route: 048
  4. PRECOSE [Concomitant]
     Dosage: 50 MG, 3X/DAY (TAKE 1 TAB BY MOUTH 3 TIMES DAILY WITH MEALS. TAKE AT START (WITH FIRST BITE) OF MEAL
     Route: 048
  5. LEVEMIR FLEXPEN [Concomitant]
     Dosage: 22 IU, 2X/DAY (INJECT 22 UNITS INTO THE SKIN 2 (TWO) TIMES DAILY.
     Route: 058

REACTIONS (1)
  - Amnesia [Unknown]
